FAERS Safety Report 6214171-8 (Version None)
Quarter: 2009Q2

REPORT INFORMATION
  Report Type: 
  Country: None (occurrence: None)
  Receive Date: 20090602
  Receipt Date: 20090525
  Transmission Date: 20091009
  Serious: Yes (Other)
  Sender: FDA-Public Use
  Company Number: 2009005951

PATIENT
  Age: 56 Year
  Sex: Male
  Weight: 80.5 kg

DRUGS (2)
  1. GABITRIL [Suspect]
     Indication: AMNESIA
     Dosage: 30 MG (10 MG,3 IN 1 D),ORAL
     Route: 048
     Dates: start: 20090418, end: 20090424
  2. GABITRIL [Suspect]
     Indication: EPILEPSY
     Dosage: 30 MG (10 MG,3 IN 1 D),ORAL
     Route: 048
     Dates: start: 20090418, end: 20090424

REACTIONS (11)
  - ABDOMINAL PAIN UPPER [None]
  - CONVULSION [None]
  - HEADACHE [None]
  - INSOMNIA [None]
  - LOSS OF CONSCIOUSNESS [None]
  - NAUSEA [None]
  - NERVOUSNESS [None]
  - THIRST [None]
  - TREMOR [None]
  - URINE ODOUR ABNORMAL [None]
  - VISION BLURRED [None]
